FAERS Safety Report 8794346 (Version 1)
Quarter: 2012Q4

REPORT INFORMATION
  Report Type: 
  Country: PH (occurrence: PH)
  Receive Date: 20120917
  Receipt Date: 20120917
  Transmission Date: 20130627
  Serious: Yes (Hospitalization, Other)
  Sender: FDA-Public Use
  Company Number: PHHY2012PH080218

PATIENT
  Age: 66 Year
  Sex: Female

DRUGS (1)
  1. ACLASTA [Suspect]
     Route: 042

REACTIONS (7)
  - Fall [Unknown]
  - Pubis fracture [Unknown]
  - Pain [Unknown]
  - Hypokinesia [Unknown]
  - Hypoparathyroidism [Unknown]
  - Nephropathy [Unknown]
  - Lumbar spinal stenosis [Unknown]
